FAERS Safety Report 9751960 (Version 2)
Quarter: 2014Q1

REPORT INFORMATION
  Report Type: Spontaneous
  Country: US (occurrence: US)
  Receive Date: 20131213
  Receipt Date: 20140224
  Transmission Date: 20141002
  Serious: No
  Sender: FDA-Public Use
  Company Number: US-009507513-1312USA005324

PATIENT
  Age: 22 Year
  Sex: Female
  Weight: 82.99 kg

DRUGS (2)
  1. NEXPLANON [Suspect]
     Indication: CONTRACEPTION
     Dosage: 68 MG
     Dates: start: 20131205, end: 201312
  2. NEXPLANON [Suspect]
     Dosage: 3 UNK, UNK
     Route: 059
     Dates: start: 201312

REACTIONS (4)
  - Device difficult to use [Unknown]
  - Device kink [Unknown]
  - Product quality issue [Unknown]
  - No adverse event [Unknown]
